FAERS Safety Report 24557959 (Version 1)
Quarter: 2024Q4

REPORT INFORMATION
  Report Type: Spontaneous
  Country: US (occurrence: US)
  Receive Date: 20241028
  Receipt Date: 20241028
  Transmission Date: 20250115
  Serious: Yes (Other)
  Sender: RANBAXY
  Company Number: US-SUN PHARMACEUTICAL INDUSTRIES LTD-2024R1-475718

PATIENT
  Age: 16 Year
  Sex: Female

DRUGS (4)
  1. SODIUM NITROPRUSSIDE [Suspect]
     Active Substance: SODIUM NITROPRUSSIDE
     Indication: Tachycardia
     Dosage: 0.7 MICROGRAM/KILOGRAM/MIN.
     Route: 065
  2. SODIUM NITROPRUSSIDE [Suspect]
     Active Substance: SODIUM NITROPRUSSIDE
     Indication: Hypertension
  3. MILRINONE [Suspect]
     Active Substance: MILRINONE
     Indication: Hypertension
     Dosage: 0.3 MICROGRAM/KILOGRAM/MIN
     Route: 065
  4. MILRINONE [Suspect]
     Active Substance: MILRINONE
     Indication: Tachycardia

REACTIONS (1)
  - Condition aggravated [Unknown]
